FAERS Safety Report 23074500 (Version 1)
Quarter: 2023Q4

REPORT INFORMATION
  Report Type: Spontaneous
  Country: CN (occurrence: CN)
  Receive Date: 20231017
  Receipt Date: 20231017
  Transmission Date: 20240110
  Serious: Yes (Hospitalization, Other)
  Sender: FDA-Public Use
  Company Number: CN-009507513-2310CHN007245

PATIENT
  Age: 55 Year
  Sex: Female

DRUGS (3)
  1. KEYTRUDA [Suspect]
     Active Substance: PEMBROLIZUMAB
     Indication: Cervix carcinoma
     Dosage: 100 MG
     Dates: start: 20230615, end: 20230615
  2. KEYTRUDA [Suspect]
     Active Substance: PEMBROLIZUMAB
     Dosage: 100 MG
     Route: 041
     Dates: start: 20230705, end: 20230705
  3. PACLITAXEL [Suspect]
     Active Substance: PACLITAXEL
     Indication: Cervix carcinoma
     Dosage: 150 MILLIGRAM, ON DAY 1 AND DAY 8 EACH CYCLE
     Dates: start: 20230615

REACTIONS (6)
  - Hypoaesthesia [Recovering/Resolving]
  - Generalised oedema [Recovering/Resolving]
  - Discomfort [Recovering/Resolving]
  - Immune-mediated hypothyroidism [Unknown]
  - Underdose [Unknown]
  - Inappropriate schedule of product administration [Unknown]

NARRATIVE: CASE EVENT DATE: 20230101
